FAERS Safety Report 13489673 (Version 1)
Quarter: 2017Q2

REPORT INFORMATION
  Report Type: Spontaneous
  Country: BR (occurrence: BR)
  Receive Date: 20170427
  Receipt Date: 20170427
  Transmission Date: 20170830
  Serious: Yes (Other)
  Sender: FDA-Public Use
  Company Number: BR-EISAI MEDICAL RESEARCH-EC-2017-026923

PATIENT
  Sex: Female

DRUGS (3)
  1. RABEPRAZOLE [Suspect]
     Active Substance: RABEPRAZOLE
     Indication: PRODUCT USED FOR UNKNOWN INDICATION
     Dosage: BRAND PARIET (DOSE UNKNOWN)
     Route: 048
     Dates: start: 2007, end: 2014
  2. RABEPRAZOLE [Suspect]
     Active Substance: RABEPRAZOLE
     Dosage: GENERIC RABEPRAZOLE (DOSE UNKNOWN)
     Route: 048
     Dates: start: 2014, end: 2017
  3. RABEPRAZOLE [Suspect]
     Active Substance: RABEPRAZOLE
     Dosage: BRAND PARIET
     Route: 048
     Dates: start: 2017

REACTIONS (3)
  - Weight decreased [Unknown]
  - Dyspepsia [Unknown]
  - Gastric cancer [Unknown]

NARRATIVE: CASE EVENT DATE: 2017
